FAERS Safety Report 6703091-8 (Version None)
Quarter: 2010Q2

REPORT INFORMATION
  Report Type: 
  Country: None (occurrence: None)
  Receive Date: 20100428
  Receipt Date: 20100415
  Transmission Date: 20101027
  Serious: Yes (Hospitalization, Other)
  Sender: FDA-Public Use
  Company Number: AXC-2010-000104

PATIENT
  Sex: Female

DRUGS (2)
  1. MESALAMINE [Suspect]
     Indication: COLITIS ULCERATIVE
     Dosage: 400 MG, QD,, 800 MG, QD,
     Dates: end: 19870101
  2. MESALAMINE [Suspect]
     Indication: COLITIS ULCERATIVE
     Dosage: 400 MG, QD,, 800 MG, QD,
     Dates: start: 19860301

REACTIONS (11)
  - ASPARTATE AMINOTRANSFERASE INCREASED [None]
  - ASPIRATION PLEURAL CAVITY ABNORMAL [None]
  - COLLAPSE OF LUNG [None]
  - DECREASED APPETITE [None]
  - EXCESSIVE GRANULATION TISSUE [None]
  - GAMMA-GLUTAMYLTRANSFERASE INCREASED [None]
  - HYDROPNEUMOTHORAX [None]
  - ORGANISING PNEUMONIA [None]
  - PLEURITIC PAIN [None]
  - POST PROCEDURAL COMPLICATION [None]
  - RED BLOOD CELL SEDIMENTATION RATE INCREASED [None]
